FAERS Safety Report 7250041-4 (Version None)
Quarter: 2011Q1

REPORT INFORMATION
  Report Type: 
  Country: None (occurrence: None)
  Receive Date: 20110128
  Receipt Date: 20110107
  Transmission Date: 20110831
  Serious: Yes (Hospitalization, Disabling)
  Sender: FDA-Public Use
  Company Number: CA-BAYER-200910866NA

PATIENT
  Sex: Male
  Weight: 85.8 kg

DRUGS (11)
  1. PAXIL [Concomitant]
     Indication: DEPRESSION
     Dosage: 40 MG, UNK
  2. FIORINAL [Concomitant]
     Indication: MIGRAINE
     Dosage: 1 DF, QD
  3. HALDOL [Concomitant]
     Indication: SEDATION
     Dosage: UNK
     Dates: start: 20060704
  4. TRASYLOL [Suspect]
     Indication: CARDIAC OPERATION
     Dosage: UNK
     Route: 042
     Dates: start: 20060704
  5. TRASYLOL [Suspect]
     Indication: AORTIC ANEURYSM
  6. FLONASE [Concomitant]
     Indication: SINUS DISORDER
     Dosage: 2 DF, QD
  7. TRASYLOL [Suspect]
     Indication: AORTIC VALVE REPLACEMENT
  8. AMOXICILLIN [Concomitant]
     Indication: TOOTH ABSCESS
     Dosage: 500 MG, QD
  9. ATIVAN [Concomitant]
     Indication: SEDATION
     Dosage: UNK
     Dates: start: 20060704
  10. PROPOFOL [Concomitant]
     Indication: SEDATION
     Dosage: UNK
     Dates: start: 20060704
  11. ELAVIL [Concomitant]
     Indication: RESTLESS LEGS SYNDROME
     Dosage: 20 MG, QD

REACTIONS (1)
  - EMBOLIC STROKE [None]
